FAERS Safety Report 8695243 (Version 2)
Quarter: 2012Q4

REPORT INFORMATION
  Report Type: 
  Country: CH (occurrence: CH)
  Receive Date: 20120731
  Receipt Date: 20120823
  Transmission Date: 20130627
  Serious: Yes (Other)
  Sender: FDA-Public Use
  Company Number: CH-ELI_LILLY_AND_COMPANY-CH201207006717

PATIENT
  Sex: Female
  Weight: 63 kg

DRUGS (3)
  1. FORSTEO [Suspect]
     Indication: OSTEOPOROSIS
     Dosage: 20 ug, qd
     Route: 058
  2. COLECALCIFEROL [Concomitant]
     Indication: OSTEOPOROSIS
     Dosage: 10 DF, qd
     Route: 048
  3. CALCIMAGON D3 [Concomitant]
     Indication: OSTEOPOROSIS
     Dosage: 1 DF, qd
     Route: 048

REACTIONS (4)
  - Tongue discolouration [Not Recovered/Not Resolved]
  - Cyanosis [Not Recovered/Not Resolved]
  - Cyanosis central [Not Recovered/Not Resolved]
  - Nausea [Not Recovered/Not Resolved]
